FAERS Safety Report 18664097 (Version 1)
Quarter: 2020Q4

REPORT INFORMATION
  Report Type: Spontaneous
  Country: US (occurrence: US)
  Receive Date: 20201225
  Receipt Date: 20201225
  Transmission Date: 20210114
  Serious: No
  Sender: FDA-Public Use
  Company Number: US-LUPIN PHARMACEUTICALS INC.-2020-08761

PATIENT
  Sex: Female
  Weight: 56.69 kg

DRUGS (1)
  1. LEVONORGESTREL AND ETHINYL ESTRADIOL TABLETS USP 0.1 MG/0.02 MG [Suspect]
     Active Substance: ETHINYL ESTRADIOL\LEVONORGESTREL
     Indication: ORAL CONTRACEPTION
     Dosage: 0.1 MG/0.02 MG, QD
     Route: 048
     Dates: start: 20201004, end: 20201029

REACTIONS (3)
  - Product dose omission issue [Unknown]
  - Treatment noncompliance [Unknown]
  - Memory impairment [Unknown]

NARRATIVE: CASE EVENT DATE: 202010
